FAERS Safety Report 4642911-8 (Version None)
Quarter: 2005Q2

REPORT INFORMATION
  Report Type: 
  Country: None (occurrence: None)
  Receive Date: 20050421
  Receipt Date: 20050414
  Transmission Date: 20051028
  Serious: Yes (Life-Threatening, Hospitalization, Other)
  Sender: FDA-Public Use
  Company Number: FRWYE587714APR05

PATIENT
  Age: 65 Year
  Sex: Female

DRUGS (6)
  1. BISOPROLOL FUMARATE [Suspect]
     Dosage: 10 MG 1X PER 1 DAY ORAL
     Route: 048
     Dates: end: 20040626
  2. ALPRESS LP (PRAZOSIN HYDROCHLORIDE, , 0) [Suspect]
     Dosage: 5 MG 1X PER 1 DAY ORAL
     Route: 048
     Dates: end: 20040626
  3. ATARAX [Suspect]
     Dosage: 25 MG 1X PER 1 DAY ORAL
     Route: 048
     Dates: end: 20040626
  4. CORDARONE [Suspect]
     Dosage: ORAL
     Route: 048
     Dates: end: 20040626
  5. INEXIUM (ESOMEPRAZOLE, , 0) [Suspect]
     Dosage: 40 MG 1X PER 2 DAY ORAL
     Route: 048
     Dates: end: 20040626
  6. LEVOTHYROXINE SODIUM [Suspect]
     Dosage: 150 UG 1X PER 1 DAY ORAL
     Route: 048
     Dates: end: 20040626

REACTIONS (3)
  - CARDIO-RESPIRATORY ARREST [None]
  - DIALYSIS [None]
  - HYPERKALAEMIA [None]
